FAERS Safety Report 20632938 (Version 1)
Quarter: 2022Q1

REPORT INFORMATION
  Report Type: Spontaneous
  Country: US (occurrence: US)
  Receive Date: 20220324
  Receipt Date: 20220324
  Transmission Date: 20220424
  Serious: Yes (Other)
  Sender: FDA-Public Use
  Company Number: US-GLAXOSMITHKLINE-US2022GSK051322

PATIENT
  Sex: Male

DRUGS (3)
  1. ZANTAC [Suspect]
     Active Substance: RANITIDINE HYDROCHLORIDE
     Indication: Abdominal discomfort
     Dosage: 25 MG, WE
     Route: 065
     Dates: start: 199305, end: 199405
  2. ZANTAC [Suspect]
     Active Substance: RANITIDINE HYDROCHLORIDE
     Indication: Abdominal discomfort
     Dosage: 25 MG, WE
     Route: 065
     Dates: start: 199305, end: 199405
  3. ZANTAC [Suspect]
     Active Substance: RANITIDINE HYDROCHLORIDE
     Indication: Abdominal discomfort
     Dosage: UNKNOWN AT THIS TIME, WE
     Route: 065
     Dates: start: 199308, end: 199405

REACTIONS (6)
  - Hepatic cancer [Unknown]
  - Renal cancer [Unknown]
  - Uterine cancer [Unknown]
  - Gastric cancer [Unknown]
  - Testis cancer [Unknown]
  - Skin cancer [Unknown]
